FAERS Safety Report 11897228 (Version 1)
Quarter: 2016Q1

REPORT INFORMATION
  Report Type: Spontaneous
  Country: FR (occurrence: FR)
  Receive Date: 20160108
  Receipt Date: 20160108
  Transmission Date: 20160526
  Serious: Yes (Hospitalization, Other)
  Sender: FDA-Public Use
  Company Number: FR-BRISTOL-MYERS SQUIBB COMPANY-10029486

PATIENT
  Sex: Male
  Weight: 2.65 kg

DRUGS (9)
  1. NORVIR [Suspect]
     Active Substance: RITONAVIR
     Indication: HIV INFECTION
     Dosage: UNK
     Route: 048
  2. SMECTA [Concomitant]
     Active Substance: MONTMORILLONITE
     Indication: PRODUCT USED FOR UNKNOWN INDICATION
     Dosage: 1 UNK, UNK
     Route: 065
  3. FERROSTRANE [Concomitant]
     Active Substance: SODIUM FEREDETATE
     Indication: PRODUCT USED FOR UNKNOWN INDICATION
     Dosage: 2.5 ML, QD
     Route: 065
  4. VIDEX [Suspect]
     Active Substance: DIDANOSINE
     Indication: HIV INFECTION
     Dosage: 3.2 ML, QD
     Route: 048
  5. EPIVIR [Suspect]
     Active Substance: LAMIVUDINE
     Indication: PRODUCT USED FOR UNKNOWN INDICATION
     Dosage: UNK
     Route: 064
  6. VIDEX [Suspect]
     Active Substance: DIDANOSINE
     Indication: PRODUCT USED FOR UNKNOWN INDICATION
     Dosage: UNK
     Route: 064
  7. ERGOCALCIFEROL. [Concomitant]
     Active Substance: ERGOCALCIFEROL
     Indication: PRODUCT USED FOR UNKNOWN INDICATION
     Route: 065
  8. ZYMAFLUOR [Interacting]
     Active Substance: SODIUM FLUORIDE
     Indication: PRODUCT USED FOR UNKNOWN INDICATION
     Route: 065
  9. EPIVIR [Suspect]
     Active Substance: LAMIVUDINE
     Indication: HIV INFECTION
     Dosage: .5 ML, BID
     Route: 065

REACTIONS (14)
  - Blood lactic acid increased [Recovered/Resolved]
  - Anaemia [Recovered/Resolved]
  - Neutropenia [Recovered/Resolved]
  - Rhinitis [Recovered/Resolved]
  - Conjunctivitis [Recovered/Resolved]
  - Candida infection [Recovered/Resolved]
  - Seborrhoeic dermatitis [Unknown]
  - Gastrooesophageal reflux disease [Recovered/Resolved]
  - Mean cell volume increased [Recovered/Resolved]
  - Platelet count increased [Recovered/Resolved]
  - Blood triglycerides increased [Recovered/Resolved]
  - Tachypnoea [Recovered/Resolved]
  - Foetal exposure during pregnancy [Recovered/Resolved]
  - Premature baby [Unknown]
